FAERS Safety Report 8219582-7 (Version None)
Quarter: 2012Q1

REPORT INFORMATION
  Report Type: 
  Country: None (occurrence: None)
  Receive Date: 20120319
  Receipt Date: 20120309
  Transmission Date: 20120608
  Serious: Yes (Hospitalization)
  Sender: FDA-Public Use
  Company Number: BR-ALLERGAN-1203411US

PATIENT
  Age: 79 Year
  Sex: Female

DRUGS (2)
  1. COSOPT [Concomitant]
     Indication: PRODUCT USED FOR UNKNOWN INDICATION
     Dosage: UNK
  2. LUMIGAN [Suspect]
     Indication: GLAUCOMA
     Dosage: 2 GTT, QD
     Route: 047
     Dates: start: 20110812, end: 20120228

REACTIONS (8)
  - CHILLS [None]
  - GASTROINTESTINAL DISORDER [None]
  - HEAD DISCOMFORT [None]
  - NAUSEA [None]
  - VOMITING [None]
  - MUSCULAR WEAKNESS [None]
  - ERUCTATION [None]
  - FLATULENCE [None]
